FAERS Safety Report 14032592 (Version 2)
Quarter: 2017Q4

REPORT INFORMATION
  Report Type: Report from Study
  Country: CA (occurrence: CA)
  Receive Date: 20171003
  Receipt Date: 20171117
  Transmission Date: 20180321
  Serious: Yes (Hospitalization)
  Sender: FDA-Public Use
  Company Number: CA-ROCHE-1972358

PATIENT
  Sex: Female

DRUGS (12)
  1. DIPHENHYDRAMINE HCL [Concomitant]
     Active Substance: DIPHENHYDRAMINE HYDROCHLORIDE
     Indication: PREMEDICATION
     Route: 048
     Dates: start: 20110225, end: 20170323
  2. SYNTHROID [Concomitant]
     Active Substance: LEVOTHYROXINE SODIUM
  3. FOLIC ACID. [Concomitant]
     Active Substance: FOLIC ACID
  4. AMLODIPINE [Concomitant]
     Active Substance: AMLODIPINE BESYLATE
  5. RITUXAN [Suspect]
     Active Substance: RITUXIMAB
     Indication: RHEUMATOID ARTHRITIS
     Route: 042
     Dates: start: 20110225, end: 20170323
  6. METHYLPREDNISOLONE. [Concomitant]
     Active Substance: METHYLPREDNISOLONE
     Route: 042
     Dates: start: 20110225, end: 20170323
  7. METOPROLOL. [Concomitant]
     Active Substance: METOPROLOL
  8. PARIET [Concomitant]
     Active Substance: RABEPRAZOLE SODIUM
  9. ACETAMINOPHEN. [Concomitant]
     Active Substance: ACETAMINOPHEN
     Indication: PREMEDICATION
     Route: 048
     Dates: start: 20110225, end: 20170323
  10. LORAZEPAM. [Concomitant]
     Active Substance: LORAZEPAM
  11. QUETIAPINE. [Concomitant]
     Active Substance: QUETIAPINE
  12. METHOTREXATE. [Concomitant]
     Active Substance: METHOTREXATE

REACTIONS (5)
  - Lower respiratory tract infection [Recovering/Resolving]
  - Respiratory failure [Recovering/Resolving]
  - Pulmonary embolism [Recovering/Resolving]
  - Impaired healing [Not Recovered/Not Resolved]
  - Pyoderma gangrenosum [Recovering/Resolving]
